FAERS Safety Report 11319632 (Version 1)
Quarter: 2015Q3

REPORT INFORMATION
  Report Type: Spontaneous
  Country: IT (occurrence: IT)
  Receive Date: 20150729
  Receipt Date: 20150729
  Transmission Date: 20151125
  Serious: Yes (Hospitalization)
  Sender: FDA-Public Use
  Company Number: IT-JNJFOC-20150714363

PATIENT
  Age: 76 Year
  Sex: Male

DRUGS (2)
  1. DUROGESIC [Suspect]
     Active Substance: FENTANYL
     Indication: BACK PAIN
     Dosage: 1 DAY
     Route: 062
     Dates: start: 20150423
  2. PALEXIA [Suspect]
     Active Substance: TAPENTADOL HYDROCHLORIDE
     Indication: BACK PAIN
     Dosage: 1 DAY
     Route: 048
     Dates: start: 20150414

REACTIONS (8)
  - Depressed level of consciousness [Recovered/Resolved]
  - Psychomotor hyperactivity [Recovered/Resolved]
  - Miosis [Unknown]
  - Confusional state [Recovered/Resolved]
  - Constipation [Recovered/Resolved]
  - Syncope [Recovered/Resolved]
  - Overdose [Recovered/Resolved]
  - Bradypnoea [Unknown]

NARRATIVE: CASE EVENT DATE: 20150516
